FAERS Safety Report 18710668 (Version 2)
Quarter: 2021Q1

REPORT INFORMATION
  Report Type: Report from Study
  Country: US (occurrence: US)
  Receive Date: 20210107
  Receipt Date: 20210206
  Transmission Date: 20210419
  Serious: Yes (Hospitalization)
  Sender: FDA-Public Use
  Company Number: US-TEVA-2021-US-1867644

PATIENT
  Age: 64 Year
  Sex: Male

DRUGS (14)
  1. INCB050465 [Suspect]
     Active Substance: PARSACLISIB HYDROCHLORIDE
     Dosage: 15 MILLIGRAM DAILY;
     Route: 048
     Dates: start: 20161121, end: 20161213
  2. FUROSEMIDE. [Concomitant]
     Active Substance: FUROSEMIDE
     Dates: start: 19951101, end: 20170112
  3. IFOSFAMIDE. [Suspect]
     Active Substance: IFOSFAMIDE
     Route: 065
     Dates: start: 20161216, end: 20161218
  4. ETOPOSIDE. [Suspect]
     Active Substance: ETOPOSIDE
     Dosage: EVERY 24 HOURS X 3 DOSES
     Route: 042
     Dates: start: 20161216, end: 20161218
  5. CARBOPLATIN. [Suspect]
     Active Substance: CARBOPLATIN
     Route: 041
     Dates: start: 20160117
  6. IFOSFAMIDE. [Suspect]
     Active Substance: IFOSFAMIDE
     Dosage: 12200 MILLIGRAM DAILY;
     Route: 041
     Dates: start: 20170108, end: 20170109
  7. CARBOPLATIN. [Suspect]
     Active Substance: CARBOPLATIN
     Route: 065
     Dates: start: 20161216, end: 20161218
  8. ETOPOSIDE. [Suspect]
     Active Substance: ETOPOSIDE
     Indication: DIFFUSE LARGE B-CELL LYMPHOMA
     Dosage: EVERY 24 HOURS X 3 DOSES
     Route: 042
     Dates: start: 20170107, end: 20170109
  9. IFOSFAMIDE. [Suspect]
     Active Substance: IFOSFAMIDE
     Indication: DIFFUSE LARGE B-CELL LYMPHOMA
     Dosage: 12100 MILLIGRAM DAILY;
     Route: 041
     Dates: start: 20160117
  10. CARBOPLATIN. [Suspect]
     Active Substance: CARBOPLATIN
     Indication: DIFFUSE LARGE B-CELL LYMPHOMA
     Route: 042
     Dates: start: 20170108
  11. RITUXIMAB. [Suspect]
     Active Substance: RITUXIMAB
     Dosage: 910 MILLIGRAM DAILY;
     Route: 041
     Dates: start: 20161214
  12. INCB050465 [Suspect]
     Active Substance: PARSACLISIB HYDROCHLORIDE
     Indication: DIFFUSE LARGE B-CELL LYMPHOMA
     Dosage: 15 MILLIGRAM DAILY;
     Route: 048
     Dates: start: 20161214, end: 20170111
  13. RITUXIMAB. [Suspect]
     Active Substance: RITUXIMAB
     Indication: DIFFUSE LARGE B-CELL LYMPHOMA
     Dosage: 911 MILLIGRAM DAILY;
     Route: 041
     Dates: start: 20170103
  14. METOPROLOL. [Concomitant]
     Active Substance: METOPROLOL
     Dosage: 100 MILLIGRAM DAILY;
     Route: 048
     Dates: start: 20161213, end: 20170111

REACTIONS (5)
  - Atrial flutter [Recovered/Resolved]
  - Atrial fibrillation [Recovered/Resolved]
  - Dyspnoea [Recovered/Resolved]
  - Neutropenia [Recovered/Resolved]
  - Febrile neutropenia [Recovered/Resolved]

NARRATIVE: CASE EVENT DATE: 20170110
